FAERS Safety Report 4410462-1 (Version None)
Quarter: 2004Q3

REPORT INFORMATION
  Report Type: 
  Country: None (occurrence: None)
  Receive Date: 20040729
  Receipt Date: 20040721
  Transmission Date: 20050211
  Serious: Yes (Hospitalization, Other)
  Sender: FDA-Public Use
  Company Number: DE-BRISTOL-MYERS SQUIBB COMPANY-12646568

PATIENT
  Age: 48 Year
  Sex: Female
  Weight: 67 kg

DRUGS (3)
  1. PACLITAXEL [Suspect]
     Indication: CERVIX CARCINOMA
     Route: 042
     Dates: start: 20040701, end: 20040701
  2. RIBOCARBO [Suspect]
     Indication: CERVIX CARCINOMA
     Route: 042
     Dates: start: 20040701, end: 20040701
  3. DARBEPOETIN ALFA [Suspect]
     Indication: PROPHYLAXIS
     Route: 058
     Dates: start: 20040701, end: 20040701

REACTIONS (1)
  - EMBOLISM [None]
